FAERS Safety Report 6310420-6 (Version None)
Quarter: 2009Q3

REPORT INFORMATION
  Report Type: 
  Country: None (occurrence: None)
  Receive Date: 20090814
  Receipt Date: 20090804
  Transmission Date: 20100115
  Serious: Yes (Other)
  Sender: FDA-Public Use
  Company Number: JP-PFIZER INC-2009244679

PATIENT
  Age: 78 Year

DRUGS (7)
  1. AZULFIDINE [Suspect]
     Indication: RHEUMATOID ARTHRITIS
     Dosage: 750 MG, 1X/DAY
     Dates: start: 20090706, end: 20090721
  2. PREDNISOLONE [Concomitant]
     Dosage: 5 MG, 2X/DAY
     Route: 048
     Dates: start: 20090706
  3. LOXONIN [Concomitant]
     Dosage: 60 MG, 2X/DAY
     Route: 048
     Dates: start: 20090706
  4. REBAMIPIDE [Concomitant]
     Dosage: 100 MG, 2X/DAY
     Route: 048
     Dates: start: 20090706
  5. ELCATONIN [Concomitant]
     Dosage: UNK
     Route: 030
     Dates: start: 20090706
  6. NEUROTROPIN [Concomitant]
     Dosage: 3 ML, UNK
     Route: 030
  7. MILTAX [Suspect]
     Dosage: UNK
     Route: 061
     Dates: start: 20090706

REACTIONS (2)
  - DRUG ERUPTION [None]
  - PURPURA [None]
